FAERS Safety Report 7116139-6 (Version None)
Quarter: 2010Q4

REPORT INFORMATION
  Report Type: 
  Country: None (occurrence: None)
  Receive Date: 20101115
  Receipt Date: 20101108
  Transmission Date: 20110411
  Serious: Yes (Hospitalization, Other)
  Sender: FDA-Public Use
  Company Number: 2010AC000441

PATIENT
  Age: 79 Year
  Sex: Female
  Weight: 48.9885 kg

DRUGS (13)
  1. DIGOXIN [Suspect]
     Dosage: PO
     Route: 048
     Dates: start: 20060301, end: 20080601
  2. DIGOXIN [Suspect]
     Dosage: 0.125 MG; QD; PO
     Route: 048
     Dates: start: 20020703, end: 20070910
  3. IMDUR [Concomitant]
  4. RANEXA [Concomitant]
  5. WARFARIN SODIUM [Concomitant]
  6. FUROSEMIDE [Concomitant]
  7. DIOVAN [Concomitant]
  8. ZYLOPRIM [Concomitant]
  9. NEXIUM [Concomitant]
  10. PROTONIX [Concomitant]
  11. FELODIPINE [Concomitant]
  12. LIPITOR [Concomitant]
  13. ASACOL [Concomitant]

REACTIONS (15)
  - ACTIVITIES OF DAILY LIVING IMPAIRED [None]
  - ANXIETY [None]
  - ASTHENIA [None]
  - BLOOD CREATININE INCREASED [None]
  - CARDIAC DISORDER [None]
  - CARDIOMEGALY [None]
  - CHOLELITHIASIS [None]
  - DECREASED APPETITE [None]
  - EPIGASTRIC DISCOMFORT [None]
  - FATIGUE [None]
  - INJURY [None]
  - MALAISE [None]
  - NAUSEA [None]
  - PAIN [None]
  - THERAPEUTIC AGENT TOXICITY [None]
